FAERS Safety Report 7691523-0 (Version None)
Quarter: 2011Q3

REPORT INFORMATION
  Report Type: 
  Country: None (occurrence: None)
  Receive Date: 20110817
  Receipt Date: 20110817
  Transmission Date: 20111222
  Serious: Yes (Hospitalization)
  Sender: FDA-Public Use
  Company Number: None

PATIENT
  Sex: Male
  Weight: 71 kg

DRUGS (8)
  1. PROCARBAZINE HYDROCHLORIDE [Suspect]
     Dosage: 1250 MG
  2. VINCRISTINE SULFATE [Suspect]
     Dosage: 2 MG
  3. CYCLOPHOSPHAMIDE [Suspect]
     Dosage: 2290MG
  4. DOXORUBICIN HCL [Suspect]
     Dosage: 64 MG
  5. BLEOMYCIN SULFATE [Suspect]
     Dosage: 18 UNITS
  6. PREDNISONE [Suspect]
     Dosage: 1120 MG
  7. ETOPOSIDE [Suspect]
     Dosage: 1110 MG
  8. ETOPOSIDE [Suspect]

REACTIONS (5)
  - CARDIO-RESPIRATORY ARREST [None]
  - GENERAL PHYSICAL HEALTH DETERIORATION [None]
  - SEPSIS [None]
  - HYPOTENSION [None]
  - WHITE BLOOD CELL COUNT DECREASED [None]
